FAERS Safety Report 14383280 (Version 1)
Quarter: 2018Q1

REPORT INFORMATION
  Report Type: Spontaneous
  Country: CZ (occurrence: CZ)
  Receive Date: 20180115
  Receipt Date: 20180115
  Transmission Date: 20180509
  Serious: Yes (Other)
  Sender: FDA-Public Use
  Company Number: CZ-CIPLA LTD.-2018CZ00019

PATIENT

DRUGS (3)
  1. TOPIRAMATE. [Suspect]
     Active Substance: TOPIRAMATE
     Dosage: 25 MG, 12 HOURLY
     Route: 065
  2. LEVETIRACETAM. [Suspect]
     Active Substance: LEVETIRACETAM
     Dosage: 450 MG, 12 HOURLY
     Route: 065
  3. DEPAKINE [Suspect]
     Active Substance: VALPROATE SODIUM
     Dosage: 380 MG, 8 HOURLY
     Route: 065

REACTIONS (4)
  - Attention deficit/hyperactivity disorder [Unknown]
  - Drug level increased [Unknown]
  - Haematocrit decreased [Unknown]
  - Red blood cell count decreased [Unknown]

NARRATIVE: CASE EVENT DATE: 201606
